FAERS Safety Report 16172753 (Version 1)
Quarter: 2019Q2

REPORT INFORMATION
  Report Type: Spontaneous
  Country: US (occurrence: US)
  Receive Date: 20190409
  Receipt Date: 20190409
  Transmission Date: 20190711
  Serious: Yes (Other)
  Sender: FDA-Public Use
  Company Number: US-AMGEN-USASP2019052894

PATIENT
  Age: 50 Year
  Sex: Female

DRUGS (6)
  1. ENBREL [Suspect]
     Active Substance: ETANERCEPT
     Dosage: UNK
     Route: 065
  2. PLAQUENIL [Concomitant]
     Active Substance: HYDROXYCHLOROQUINE SULFATE
     Dosage: UNK UNK, AS NECESSARY
  3. VITAMIN B12 [Concomitant]
     Active Substance: CYANOCOBALAMIN
     Dosage: UNK
  4. ARAVA [Concomitant]
     Active Substance: LEFLUNOMIDE
     Dosage: UNK UNK, AS NECESSARY
  5. ENBREL [Suspect]
     Active Substance: ETANERCEPT
     Dosage: UNK
     Route: 065
  6. ENBREL [Suspect]
     Active Substance: ETANERCEPT
     Indication: RHEUMATOID ARTHRITIS
     Dosage: UNK
     Route: 065

REACTIONS (6)
  - Injection site mass [Unknown]
  - Injection site pruritus [Unknown]
  - Injection site pain [Unknown]
  - Malaise [Recovering/Resolving]
  - Wrong technique in product usage process [Unknown]
  - Hip surgery [Unknown]

NARRATIVE: CASE EVENT DATE: 20190330
